FAERS Safety Report 9255502 (Version 1)
Quarter: 2013Q2

REPORT INFORMATION
  Report Type: Spontaneous
  Country: US (occurrence: US)
  Receive Date: 20130425
  Receipt Date: 20130425
  Transmission Date: 20140414
  Serious: Yes (Hospitalization, Other)
  Sender: FDA-Public Use
  Company Number: US-BAYER-2013-052337

PATIENT
  Sex: Male

DRUGS (4)
  1. XARELTO [Suspect]
     Indication: CEREBROVASCULAR ACCIDENT PROPHYLAXIS
     Route: 048
     Dates: end: 201304
  2. XARELTO [Interacting]
     Indication: ATRIAL FIBRILLATION
  3. PLAVIX [Interacting]
     Indication: STENT PLACEMENT
     Route: 065
     Dates: end: 201304
  4. ACETYLSALICYLIC ACID [Interacting]
     Route: 065
     Dates: end: 201304

REACTIONS (1)
  - Rectal haemorrhage [Unknown]
